FAERS Safety Report 9218268 (Version 1)
Quarter: 2013Q2

REPORT INFORMATION
  Report Type: Spontaneous
  Country: US (occurrence: US)
  Receive Date: 20130409
  Receipt Date: 20130409
  Transmission Date: 20140414
  Serious: Yes (Other)
  Sender: FDA-Public Use
  Company Number: US-AMGEN-USASP2013023639

PATIENT
  Age: 56 Year
  Sex: Female

DRUGS (2)
  1. ENBREL [Suspect]
     Indication: ANKYLOSING SPONDYLITIS
     Dosage: 50 MG, QWK
     Dates: start: 201104
  2. METHOTREXATE [Concomitant]
     Dosage: 25 MG, QWK

REACTIONS (4)
  - Hysterectomy [Recovered/Resolved]
  - Iritis [Recovered/Resolved]
  - Ankylosing spondylitis [Recovered/Resolved]
  - Influenza [Recovered/Resolved]
